FAERS Safety Report 10036086 (Version 1)
Quarter: 2014Q1

REPORT INFORMATION
  Report Type: Report from Study
  Country: CZ (occurrence: CZ)
  Receive Date: 20140325
  Receipt Date: 20140325
  Transmission Date: 20141002
  Serious: Yes (Other)
  Sender: FDA-Public Use
  Company Number: CZ-PFIZER INC-2014082740

PATIENT
  Age: 60 Year
  Sex: Male
  Weight: 96 kg

DRUGS (1)
  1. SUTENT [Suspect]
     Indication: RENAL CELL CARCINOMA
     Dosage: 50 MG, CYCLIC ONCE DAILY 4 WEEKS ON/2WEEKS OFF
     Route: 048
     Dates: start: 20140210

REACTIONS (9)
  - Gouty arthritis [Recovered/Resolved]
  - Dysgeusia [Unknown]
  - Weight decreased [Unknown]
  - Fatigue [Unknown]
  - Tremor [Unknown]
  - Feeling cold [Unknown]
  - Body temperature increased [Unknown]
  - Dyspepsia [Unknown]
  - Arthralgia [Unknown]
